FAERS Safety Report 24125082 (Version 1)
Quarter: 2024Q3

REPORT INFORMATION
  Report Type: Spontaneous
  Country: US (occurrence: US)
  Receive Date: 20240723
  Receipt Date: 20240723
  Transmission Date: 20241016
  Serious: No
  Sender: SCIEGEN
  Company Number: US-SCIEGENP-2024SCSPO00322

PATIENT

DRUGS (1)
  1. OLMESARTAN MEDOXOMIL [Suspect]
     Active Substance: OLMESARTAN MEDOXOMIL
     Indication: Hypertension
     Route: 065
     Dates: start: 20240622, end: 20240622

REACTIONS (8)
  - Hypersensitivity [Recovered/Resolved]
  - Rash [Recovered/Resolved]
  - Pharyngeal swelling [Recovered/Resolved]
  - Swelling [Recovered/Resolved]
  - Swollen tongue [Recovered/Resolved]
  - Pruritus [Recovered/Resolved]
  - Lip swelling [Recovered/Resolved]
  - Product substitution issue [Unknown]
